FAERS Safety Report 17797982 (Version 3)
Quarter: 2020Q3

REPORT INFORMATION
  Report Type: Other
  Country: US (occurrence: US)
  Receive Date: 20200518
  Receipt Date: 20200812
  Transmission Date: 20201102
  Serious: Yes (Other)
  Sender: FDA-Public Use
  Company Number: US-ROCHE-2599354

PATIENT
  Age: 44 Year
  Sex: Female
  Weight: 60.38 kg

DRUGS (5)
  1. IRON [Concomitant]
     Active Substance: IRON
  2. OCREVUS [Suspect]
     Active Substance: OCRELIZUMAB
     Route: 042
     Dates: start: 20191212
  3. OCREVUS [Suspect]
     Active Substance: OCRELIZUMAB
     Indication: RELAPSING-REMITTING MULTIPLE SCLEROSIS
     Dosage: NO
     Route: 042
     Dates: start: 20190605, end: 20190621
  4. AMANTADINE. [Concomitant]
     Active Substance: AMANTADINE HYDROCHLORIDE
  5. OPICINUMAB [Concomitant]
     Active Substance: OPICINUMAB

REACTIONS (4)
  - Pregnancy [Unknown]
  - Pruritus [Recovered/Resolved]
  - Relapsing multiple sclerosis [Not Recovered/Not Resolved]
  - Urinary tract infection [Recovered/Resolved]

NARRATIVE: CASE EVENT DATE: 20190605
